FAERS Safety Report 4348827-9 (Version None)
Quarter: 2004Q2

REPORT INFORMATION
  Report Type: 
  Country: None (occurrence: None)
  Receive Date: 20040423
  Receipt Date: 20040407
  Transmission Date: 20050107
  Serious: Yes (Hospitalization, Other)
  Sender: FDA-Public Use
  Company Number: 8005950

PATIENT
  Age: 77 Year
  Sex: Male
  Weight: 60 kg

DRUGS (4)
  1. KEPPRA [Suspect]
     Indication: EPILEPSY
     Dosage: 1000 MG PO
     Route: 048
  2. ERGENYL [Concomitant]
  3. PANTOPRAZOL [Concomitant]
  4. ALNA [Concomitant]

REACTIONS (5)
  - ERYTHEMA [None]
  - EXANTHEM [None]
  - NAIL DISORDER [None]
  - RASH PRURITIC [None]
  - RASH SCALY [None]
